FAERS Safety Report 8806710 (Version 1)
Quarter: 2012Q4

REPORT INFORMATION
  Report Type: 
  Country: BR (occurrence: BR)
  Receive Date: 20120925
  Receipt Date: 20120925
  Transmission Date: 20130627
  Serious: Yes (Death)
  Sender: FDA-Public Use
  Company Number: PHHY2012BR082857

PATIENT
  Sex: Female

DRUGS (7)
  1. FORASEQ [Suspect]
     Indication: HYPERSENSITIVITY
     Dosage: 12/200 mcg, twice daily
  2. FORASEQ [Suspect]
     Indication: DYSPNOEA
     Dosage: 12/400 mcg, twice daily
  3. ATACAND [Concomitant]
     Indication: BLOOD PRESSURE
     Dosage: 1 DF, QD
     Route: 048
  4. SIMVASTATIN [Concomitant]
     Indication: AORTIC OCCLUSION
     Dosage: 1 DF, QHS
     Route: 048
  5. SIMVASTATIN [Concomitant]
     Indication: BLOOD CHOLESTEROL
  6. ATENSINA [Concomitant]
     Indication: HYPERTENSION
     Dosage: 3 DF, QD
     Route: 048
  7. PURAN T4 [Concomitant]
     Indication: HYPOTHYROIDISM
     Dosage: 1 DF, QD
     Route: 048

REACTIONS (3)
  - Pneumonia [Fatal]
  - Emphysema [Fatal]
  - Sepsis [Fatal]
